FAERS Safety Report 8916635 (Version 2)
Quarter: 2013Q2

REPORT INFORMATION
  Report Type: Spontaneous
  Country: JP (occurrence: JP)
  Receive Date: 20121120
  Receipt Date: 20130625
  Transmission Date: 20140414
  Serious: Yes (Hospitalization, Other)
  Sender: FDA-Public Use
  Company Number: JP-ASTRAZENECA-2012SE87659

PATIENT
  Age: 63 Year
  Sex: Female

DRUGS (2)
  1. OMEPRAZON [Suspect]
     Indication: DUODENAL ULCER
     Route: 048
     Dates: start: 20121025, end: 20121029
  2. LANSAP [Concomitant]
     Route: 048
     Dates: start: 20121018

REACTIONS (2)
  - Drug eruption [Recovered/Resolved]
  - Erythema multiforme [Recovered/Resolved]
